FAERS Safety Report 7328321-3 (Version None)
Quarter: 2011Q1

REPORT INFORMATION
  Report Type: 
  Country: None (occurrence: None)
  Receive Date: 20110222
  Receipt Date: 20110207
  Transmission Date: 20110831
  Serious: Yes (Death, Other)
  Sender: FDA-Public Use
  Company Number: 2011P1004335

PATIENT
  Age: 38 Year
  Sex: Female

DRUGS (1)
  1. FENTANYL PATCH 50 MCG/ HR  (NO PREF. NAME) [Suspect]
     Indication: PAIN
     Dosage: 50 MCG/HR; TDER
     Route: 062

REACTIONS (6)
  - ANHEDONIA [None]
  - PAIN [None]
  - POISONING [None]
  - ANXIETY [None]
  - PRODUCT ADHESION ISSUE [None]
  - DEVICE FAILURE [None]
